FAERS Safety Report 9625616 (Version 1)
Quarter: 2013Q4

REPORT INFORMATION
  Report Type: Spontaneous
  Country: US (occurrence: None)
  Receive Date: 20131015
  Receipt Date: 20131015
  Transmission Date: 20140711
  Serious: Yes (Life-Threatening, Hospitalization)
  Sender: FDA-Public Use
  Company Number: None

PATIENT
  Age: 50 Year
  Sex: Female
  Weight: 86.2 kg

DRUGS (7)
  1. ENBREL [Suspect]
     Indication: RHEUMATOID ARTHRITIS
     Dosage: 1 PILL, ORAL
     Route: 048
  2. VIT D [Concomitant]
  3. PREDNISONE [Concomitant]
  4. LEVOTHYROXINE [Concomitant]
  5. PROTONIX [Concomitant]
  6. ALPRAZOLAM [Concomitant]
  7. ENBREL [Concomitant]

REACTIONS (1)
  - Pulmonary embolism [None]
